FAERS Safety Report 8016527-X (Version None)
Quarter: 2011Q4

REPORT INFORMATION
  Report Type: 
  Country: None (occurrence: None)
  Receive Date: 20111230
  Receipt Date: 20081106
  Transmission Date: 20120403
  Serious: Yes (Death, Hospitalization)
  Sender: FDA-Public Use
  Company Number: PHHY2008FR27446

PATIENT
  Sex: Female
  Weight: 9 kg

DRUGS (11)
  1. PROGRAF [Interacting]
     Indication: TRANSPLANT
     Dosage: 1.5 MG, QD
     Route: 048
     Dates: start: 20081004
  2. ALDACTONE [Concomitant]
     Indication: HYPERTENSION
     Dosage: UNK UKN, UNK
  3. PROPRANOLOL [Concomitant]
     Indication: HYPERTENSION
     Dosage: UNK UKN, UNK
  4. SANDIMMUNE [Interacting]
     Indication: TRANSPLANT
     Dosage: 40 MG, QD
     Route: 042
     Dates: start: 20081001, end: 20081003
  5. NEORAL [Suspect]
     Indication: TRANSPLANT
     Dosage: 20 MG, TID
     Route: 048
     Dates: start: 20080918, end: 20081002
  6. LASIX [Concomitant]
     Indication: HYPERTENSION
     Dosage: UNK UKN, UNK
  7. CARDENE [Interacting]
     Indication: HYPERTENSION
     Dosage: 30 MG, QD
     Route: 042
     Dates: start: 20080921, end: 20081005
  8. EUPRESSYL [Concomitant]
     Indication: HYPERTENSION
     Dosage: UNK UKN, UNK
     Dates: start: 20080921
  9. PROGRAF [Interacting]
     Dosage: 1 MG, QD
     Dates: start: 20081020
  10. PROGRAF [Interacting]
     Dosage: 2.25 MG, QD
     Dates: start: 20081014
  11. ISRADIPINE [Concomitant]
     Indication: HYPERTENSION
     Dosage: UNK UKN, UNK

REACTIONS (5)
  - HYPERTENSION [None]
  - DRUG INTERACTION [None]
  - DEATH [None]
  - DRUG LEVEL INCREASED [None]
  - CLONIC CONVULSION [None]
